FAERS Safety Report 24196764 (Version 1)
Quarter: 2024Q3

REPORT INFORMATION
  Report Type: Report from Study
  Country: US (occurrence: US)
  Receive Date: 20240810
  Receipt Date: 20240810
  Transmission Date: 20241017
  Serious: Yes (Other)
  Sender: ABBVIE
  Company Number: US-ABBVIE-5838627

PATIENT
  Age: 34 Year
  Sex: Male
  Weight: 68 kg

DRUGS (1)
  1. TAZORAC [Suspect]
     Active Substance: TAZAROTENE
     Indication: Product used for unknown indication
     Dosage: 0.05%
     Route: 065
     Dates: start: 202401, end: 202402

REACTIONS (3)
  - Product physical consistency issue [Not Recovered/Not Resolved]
  - Product physical issue [Not Recovered/Not Resolved]
  - Poor quality product administered [Not Recovered/Not Resolved]

NARRATIVE: CASE EVENT DATE: 20240101
